FAERS Safety Report 25833214 (Version 1)
Quarter: 2025Q3

REPORT INFORMATION
  Report Type: Spontaneous
  Country: US (occurrence: None)
  Receive Date: 20250922
  Receipt Date: 20250922
  Transmission Date: 20251021
  Serious: No
  Sender: FDA-CTU
  Company Number: None

PATIENT
  Age: 72 Year
  Sex: Male
  Weight: 93 kg

DRUGS (1)
  1. ABIRATERONE ACETATE [Suspect]
     Active Substance: ABIRATERONE ACETATE
     Indication: Prostate cancer
     Dosage: FREQUENCY : 4 TIMES A DAY;?
     Route: 048
     Dates: end: 20250625

REACTIONS (14)
  - Liver function test increased [None]
  - Malaise [None]
  - Vomiting [None]
  - Diarrhoea [None]
  - Pallor [None]
  - Dysstasia [None]
  - Speech disorder [None]
  - Hypotension [None]
  - Body temperature increased [None]
  - Flatulence [None]
  - Pyuria [None]
  - Nausea [None]
  - Vomiting [None]
  - Therapy cessation [None]

NARRATIVE: CASE EVENT DATE: 20250910
